FAERS Safety Report 23733563 (Version 1)
Quarter: 2024Q2

REPORT INFORMATION
  Report Type: Spontaneous
  Country: CN (occurrence: None)
  Receive Date: 20240411
  Receipt Date: 20240411
  Transmission Date: 20240716
  Serious: Yes (Hospitalization, Other)
  Sender: FDA-Public Use
  Company Number: 2024A082807

PATIENT
  Age: 18650 Day
  Sex: Male

DRUGS (4)
  1. BRILINTA [Suspect]
     Active Substance: TICAGRELOR
     Indication: Coronary artery disease
     Route: 048
     Dates: start: 20240303, end: 20240308
  2. ZYVOX [Suspect]
     Active Substance: LINEZOLID
     Indication: Diabetic ketoacidosis
     Dates: start: 20240304, end: 20240305
  3. ASPIRIN [Suspect]
     Active Substance: ASPIRIN
     Indication: Coronary artery disease
     Route: 048
     Dates: start: 20240303, end: 20240308
  4. MEROPENEM [Concomitant]
     Active Substance: MEROPENEM
     Indication: Diabetic ketoacidosis
     Dates: start: 20240304, end: 20240315

REACTIONS (2)
  - Platelet count decreased [Recovering/Resolving]
  - Myelosuppression [Unknown]

NARRATIVE: CASE EVENT DATE: 20240307
